FAERS Safety Report 10029324 (Version 1)
Quarter: 2014Q1

REPORT INFORMATION
  Report Type: Spontaneous
  Country: KR (occurrence: KR)
  Receive Date: 20140321
  Receipt Date: 20140321
  Transmission Date: 20141002
  Serious: Yes (Life-Threatening, Hospitalization, Other)
  Sender: FDA-Public Use
  Company Number: CHPA2014KR004209

PATIENT
  Age: 43 Year
  Sex: Female

DRUGS (2)
  1. ACETAMINOPHEN (PARACETAMOL) [Suspect]
     Indication: UPPER RESPIRATORY TRACT INFECTION
     Route: 048
  2. ACETAMINOPHEN (PARACETAMOL) [Suspect]
     Indication: OFF LABEL USE

REACTIONS (16)
  - Stevens-Johnson syndrome [Recovered/Resolved]
  - Toxic epidermal necrolysis [Recovered/Resolved]
  - Skin disorder [Recovered/Resolved]
  - Dermatitis bullous [Recovered/Resolved]
  - Nikolsky^s sign [Recovered/Resolved]
  - Mouth ulceration [Recovered/Resolved]
  - Pharyngeal ulceration [Recovered/Resolved]
  - Conjunctivitis [Recovered/Resolved]
  - Body temperature increased [Recovered/Resolved]
  - Tachycardia [Recovered/Resolved]
  - Tachypnoea [Recovered/Resolved]
  - Rash macular [Recovered/Resolved]
  - Tenderness [Recovered/Resolved]
  - Blood sodium decreased [Recovered/Resolved]
  - Blood potassium decreased [Recovered/Resolved]
  - Blood calcium decreased [Recovered/Resolved]
